FAERS Safety Report 7164838-2 (Version None)
Quarter: 2010Q4

REPORT INFORMATION
  Report Type: 
  Country: None (occurrence: None)
  Receive Date: 20101215
  Receipt Date: 20101213
  Transmission Date: 20110411
  Serious: Yes (Life-Threatening, Hospitalization)
  Sender: FDA-Public Use
  Company Number: FR-PFIZER INC-2010163609

PATIENT
  Age: 43 Year
  Sex: Male
  Weight: 60 kg

DRUGS (6)
  1. IRINOTECAN HCL [Suspect]
     Indication: GLIOBLASTOMA
     Dosage: 220 MG
     Route: 042
     Dates: start: 20101123, end: 20101123
  2. BEVACIZUMAB [Suspect]
     Indication: GLIOBLASTOMA
     Dosage: 600 MG
     Route: 042
     Dates: start: 20101123, end: 20101123
  3. MEDROL [Concomitant]
     Indication: GLIOBLASTOMA
     Dosage: UNK
     Route: 048
     Dates: start: 20101123
  4. ESCITALOPRAM [Concomitant]
     Indication: ANXIETY
     Dosage: UNK
     Route: 048
     Dates: start: 20101118
  5. EUPANTOL [Concomitant]
     Indication: PROPHYLAXIS
     Dosage: UNK
     Route: 048
     Dates: start: 20101118
  6. DOLIPRANE [Concomitant]
     Indication: PAIN
     Dosage: UNK
     Route: 048
     Dates: start: 20101118

REACTIONS (2)
  - DEEP VEIN THROMBOSIS [None]
  - TUMOUR HAEMORRHAGE [None]
